FAERS Safety Report 24184752 (Version 1)
Quarter: 2024Q3

REPORT INFORMATION
  Report Type: Spontaneous
  Country: US (occurrence: None)
  Receive Date: 20240807
  Receipt Date: 20240807
  Transmission Date: 20241016
  Serious: Yes (Other)
  Sender: Public
  Company Number: None

PATIENT
  Age: 33 Year
  Sex: Male

DRUGS (1)
  1. REZDIFFRA [Suspect]
     Active Substance: RESMETIROM
     Indication: Non-alcoholic steatohepatitis

REACTIONS (3)
  - Rash erythematous [None]
  - Pruritus [None]
  - Burning sensation [None]

NARRATIVE: CASE EVENT DATE: 20240528
